FAERS Safety Report 8971719 (Version 1)
Quarter: 2012Q4

REPORT INFORMATION
  Report Type: 
  Country: US (occurrence: US)
  Receive Date: 20121217
  Receipt Date: 20121217
  Transmission Date: 20130627
  Serious: Yes (Other)
  Sender: FDA-Public Use
  Company Number: US-BAYER-2012-129918

PATIENT
  Age: 74 Year
  Sex: Female
  Weight: 59 kg

DRUGS (2)
  1. ALEVE CAPLET/TABLET,MIDOL EXTENDED RELIEF CAPLET [Suspect]
     Indication: TOOTHACHE
     Dosage: 1 DF, ONCE
     Route: 048
     Dates: start: 20121205, end: 20121205
  2. SINEMET [Concomitant]

REACTIONS (5)
  - Dyspnoea [Recovered/Resolved]
  - Wrong technique in drug usage process [Recovered/Resolved]
  - Oral discomfort [Recovered/Resolved]
  - Foreign body [Recovered/Resolved]
  - Dyspnoea [Recovered/Resolved]
